FAERS Safety Report 23390084 (Version 1)
Quarter: 2024Q1

REPORT INFORMATION
  Report Type: Spontaneous
  Country: EG (occurrence: None)
  Receive Date: 20240111
  Receipt Date: 20240111
  Transmission Date: 20240410
  Serious: Yes (Other)
  Sender: FDA-Public Use
  Company Number: EG-Unichem Pharmaceuticals (USA) Inc-UCM202401-000007

PATIENT
  Age: 48 Year
  Sex: Female

DRUGS (4)
  1. BACLOFEN [Suspect]
     Active Substance: BACLOFEN
     Indication: Back pain
  2. MYCOPHENOLATE MOFETIL [Concomitant]
     Active Substance: MYCOPHENOLATE MOFETIL
     Indication: Renal transplant
     Dosage: UNKNOWN
  3. PREDNISOLONE [Concomitant]
     Active Substance: PREDNISOLONE
     Indication: Renal transplant
     Dosage: UNKNOWN
  4. CYCLOSPORINE [Concomitant]
     Active Substance: CYCLOSPORINE
     Indication: Renal transplant
     Dosage: UNKNOWN

REACTIONS (3)
  - Loss of consciousness [Recovered/Resolved]
  - Azotaemia [Recovered/Resolved]
  - Toxicity to various agents [Unknown]
